FAERS Safety Report 6599118-7 (Version None)
Quarter: 2010Q1

REPORT INFORMATION
  Report Type: 
  Country: None (occurrence: None)
  Receive Date: 20100217
  Receipt Date: 20100202
  Transmission Date: 20100710
  Serious: Yes (Life-Threatening, Hospitalization)
  Sender: FDA-Public Use
  Company Number: AMAG201000037

PATIENT
  Age: 84 Year
  Sex: Male
  Weight: 77.1 kg

DRUGS (9)
  1. FERAHEME [Suspect]
     Indication: IRON DEFICIENCY ANAEMIA
     Dosage: 510 MG, SINGLE, INTRAVENOUS; 9 ML, SINGLE (PARTIAL DOSE), INTRAVENOUS
     Route: 042
     Dates: start: 20100104, end: 20100104
  2. FERAHEME [Suspect]
     Indication: RENAL FAILURE CHRONIC
     Dosage: 510 MG, SINGLE, INTRAVENOUS; 9 ML, SINGLE (PARTIAL DOSE), INTRAVENOUS
     Route: 042
     Dates: start: 20100104, end: 20100104
  3. FERAHEME [Suspect]
     Indication: IRON DEFICIENCY ANAEMIA
     Dosage: 510 MG, SINGLE, INTRAVENOUS; 9 ML, SINGLE (PARTIAL DOSE), INTRAVENOUS
     Route: 042
     Dates: start: 20100118, end: 20100118
  4. FERAHEME [Suspect]
     Indication: RENAL FAILURE CHRONIC
     Dosage: 510 MG, SINGLE, INTRAVENOUS; 9 ML, SINGLE (PARTIAL DOSE), INTRAVENOUS
     Route: 042
     Dates: start: 20100118, end: 20100118
  5. LISINOPRIL (LISINOPRIL DIHYDRATE) [Concomitant]
  6. TOPROL-XL [Concomitant]
  7. AMLODIPINE [Concomitant]
  8. DONEPEZIL HCL [Concomitant]
  9. BABY ASPIRIN (ACETYLSALICYLIC ACID) TABLET [Concomitant]

REACTIONS (21)
  - ACUTE MYOCARDIAL INFARCTION [None]
  - ACUTE RESPIRATORY FAILURE [None]
  - ATELECTASIS [None]
  - ATRIAL FIBRILLATION [None]
  - CARDIOMEGALY [None]
  - DIASTOLIC DYSFUNCTION [None]
  - DILATATION VENTRICULAR [None]
  - DIZZINESS [None]
  - HAEMODIALYSIS [None]
  - HAEMOGLOBIN DECREASED [None]
  - HYPOTENSION [None]
  - LEFT ATRIAL DILATATION [None]
  - LUNG INFILTRATION [None]
  - PLEURAL EFFUSION [None]
  - PULMONARY CONGESTION [None]
  - PULMONARY OEDEMA [None]
  - RENAL FAILURE CHRONIC [None]
  - SYNCOPE [None]
  - TACHYCARDIA [None]
  - TRICUSPID VALVE INCOMPETENCE [None]
  - VOMITING [None]
